FAERS Safety Report 7230120-8 (Version None)
Quarter: 2011Q1

REPORT INFORMATION
  Report Type: 
  Country: None (occurrence: None)
  Receive Date: 20110118
  Receipt Date: 20110110
  Transmission Date: 20110831
  Serious: Yes (Other)
  Sender: FDA-Public Use
  Company Number: US-US-EMD SERONO, INC.-7035541

PATIENT
  Sex: Female

DRUGS (1)
  1. REBIF [Suspect]
     Indication: PRODUCT USED FOR UNKNOWN INDICATION
     Route: 058
     Dates: start: 20090715

REACTIONS (5)
  - CONTUSION [None]
  - URINARY RETENTION [None]
  - FLANK PAIN [None]
  - INJECTION SITE NODULE [None]
  - RENAL CYST [None]
